FAERS Safety Report 20371668 (Version 1)
Quarter: 2022Q1

REPORT INFORMATION
  Report Type: Spontaneous
  Country: US (occurrence: US)
  Receive Date: 20220124
  Receipt Date: 20220124
  Transmission Date: 20220423
  Serious: No
  Sender: FDA-Public Use
  Company Number: US-PFIZER INC-202101427149

PATIENT
  Sex: Female

DRUGS (1)
  1. RAMIPRIL [Suspect]
     Active Substance: RAMIPRIL
     Dosage: 5 MG

REACTIONS (2)
  - Pain in extremity [Unknown]
  - Arthralgia [Unknown]
